FAERS Safety Report 8975206 (Version 1)
Quarter: 2012Q4

REPORT INFORMATION
  Report Type: 
  Country: NL (occurrence: NL)
  Receive Date: 20121219
  Receipt Date: 20121219
  Transmission Date: 20130627
  Serious: Yes (Hospitalization)
  Sender: FDA-Public Use
  Company Number: PHHY2012NL115688

PATIENT
  Age: 84 Year
  Sex: Female

DRUGS (3)
  1. ACLASTA [Suspect]
     Indication: OSTEOPOROSIS
     Dosage: 5 mg once per 364 days
     Route: 042
     Dates: start: 20100315
  2. ACLASTA [Suspect]
     Dosage: 5 mg once per 364 days
     Route: 042
     Dates: start: 20110310
  3. ACLASTA [Suspect]
     Dosage: 5 mg once per 364 days
     Route: 042
     Dates: start: 20121212

REACTIONS (3)
  - Myocardial infarction [Recovered/Resolved]
  - Fall [Recovered/Resolved]
  - Hip fracture [Recovered/Resolved]
